FAERS Safety Report 19941652 (Version 1)
Quarter: 2021Q4

REPORT INFORMATION
  Report Type: Spontaneous
  Country: US (occurrence: US)
  Receive Date: 20211011
  Receipt Date: 20211011
  Transmission Date: 20220303
  Serious: Yes (Hospitalization, Other)
  Sender: FDA-Public Use
  Company Number: US-BAYER-2021A224482

PATIENT
  Age: 73 Year
  Sex: Female
  Weight: 96.6 kg

DRUGS (2)
  1. ADEMPAS [Suspect]
     Active Substance: RIOCIGUAT
     Indication: Product used for unknown indication
     Dosage: UNK
  2. MACITENTAN [Suspect]
     Active Substance: MACITENTAN
     Indication: Pulmonary arterial hypertension
     Dosage: 10 MG, QD
     Route: 048

REACTIONS (5)
  - Weight increased [None]
  - Thrombosis [None]
  - Renal disorder [None]
  - Haemoglobin decreased [None]
  - Increased tendency to bruise [None]

NARRATIVE: CASE EVENT DATE: 20200201
